FAERS Safety Report 23978328 (Version 4)
Quarter: 2024Q2

REPORT INFORMATION
  Report Type: Spontaneous
  Country: CA (occurrence: CA)
  Receive Date: 20240614
  Receipt Date: 20240627
  Transmission Date: 20240716
  Serious: Yes (Hospitalization)
  Sender: FDA-Public Use
  Company Number: CA-BIOMARINAP-CA-2024-158415

PATIENT

DRUGS (1)
  1. NAGLAZYME [Suspect]
     Active Substance: GALSULFASE
     Indication: Mucopolysaccharidosis VI
     Dosage: 35 MILLIGRAM, QW
     Route: 042
     Dates: start: 20170627

REACTIONS (19)
  - Pneumonia [Recovering/Resolving]
  - Lower respiratory tract congestion [Recovering/Resolving]
  - Diarrhoea [Recovering/Resolving]
  - Secretion discharge [Recovering/Resolving]
  - Throat irritation [Recovering/Resolving]
  - Crepitations [Recovering/Resolving]
  - Productive cough [Recovering/Resolving]
  - Fatigue [Recovering/Resolving]
  - Oxygen saturation decreased [Recovering/Resolving]
  - Heart rate increased [Recovering/Resolving]
  - Wheezing [Recovering/Resolving]
  - Respiratory rate increased [Recovering/Resolving]
  - Cough [Recovering/Resolving]
  - Headache [Recovered/Resolved]
  - Arthralgia [Recovering/Resolving]
  - Pyrexia [Recovered/Resolved]
  - Vomiting [Recovering/Resolving]
  - Agitation [Recovering/Resolving]
  - Dyspnoea [Recovering/Resolving]

NARRATIVE: CASE EVENT DATE: 20240601
